FAERS Safety Report 7358671-6 (Version None)
Quarter: 2011Q1

REPORT INFORMATION
  Report Type: 
  Country: None (occurrence: None)
  Receive Date: 20110317
  Receipt Date: 20110315
  Transmission Date: 20110831
  Serious: No
  Sender: FDA-Public Use
  Company Number: US-PFIZER INC-2011057253

PATIENT
  Sex: Female

DRUGS (2)
  1. PRISTIQ [Suspect]
     Indication: DEPRESSION
     Dosage: UNK
     Dates: start: 20110201
  2. PROZAC [Concomitant]
     Dosage: UNK

REACTIONS (3)
  - NAUSEA [None]
  - TREMOR [None]
  - TACHYPHRENIA [None]
